FAERS Safety Report 19791263 (Version 1)
Quarter: 2021Q3

REPORT INFORMATION
  Report Type: Spontaneous
  Country: DE (occurrence: DE)
  Receive Date: 20210906
  Receipt Date: 20210906
  Transmission Date: 20211014
  Serious: Yes (Hospitalization, Congenital Anomaly, Other)
  Sender: FDA-Public Use
  Company Number: DE-ALLERGAN-2130979US

PATIENT
  Sex: Male
  Weight: 3.34 kg

DRUGS (5)
  1. QUETIAPIN RETARD [Suspect]
     Active Substance: QUETIAPINE
     Indication: EXPOSURE DURING PREGNANCY
     Dosage: 300(MG/D)/ INITIAL 200MG DAILY, DOSAGE INCREASED TO 300 MG DAILY
     Route: 064
     Dates: start: 20200104, end: 20201012
  2. FOLSAURE [Concomitant]
     Active Substance: FOLIC ACID
     Indication: PROPHYLAXIS OF NEURAL TUBE DEFECT
     Dosage: UNK
     Route: 064
     Dates: start: 20200104, end: 20200909
  3. BOOSTRIX [Concomitant]
     Active Substance: TETANUS TOXOID, REDUCED DIPHTHERIA TOXOID AND ACELLULAR PERTUSSIS VACCINE, ADSORBED ANTIGENS
     Indication: IMMUNISATION
     Dosage: UNK UNK, SINGLE
     Route: 064
     Dates: start: 20200820, end: 20200820
  4. ESCITALOPRAM OXALATE ? BP [Suspect]
     Active Substance: ESCITALOPRAM OXALATE
     Indication: EXPOSURE DURING PREGNANCY
     Dosage: 10 [MG/D ]
     Route: 064
  5. OMEPRAZOL [Concomitant]
     Active Substance: OMEPRAZOLE
     Indication: PRODUCT USED FOR UNKNOWN INDICATION
     Dosage: 20 [MG/D (BEI BEDARF) ]/ IF REQUIRED (20 [MG / D (IF REQUIRED)] / IF REQUIRED)
     Route: 064

REACTIONS (2)
  - Pregnancy [Unknown]
  - Cleft lip and palate [Recovered/Resolved with Sequelae]
